FAERS Safety Report 14001936 (Version 1)
Quarter: 2017Q3

REPORT INFORMATION
  Report Type: Spontaneous
  Country: US (occurrence: US)
  Receive Date: 20170922
  Receipt Date: 20170922
  Transmission Date: 20171128
  Serious: No
  Sender: FDA-Public Use
  Company Number: US-AQUA PHARMACEUTICALS-2017AQU000060

PATIENT

DRUGS (2)
  1. FLUOROPLEX [Suspect]
     Active Substance: FLUOROURACIL
     Indication: PRECANCEROUS CELLS PRESENT
     Dosage: UNK
     Route: 061
     Dates: start: 2015
  2. FLUOROPLEX [Suspect]
     Active Substance: FLUOROURACIL
     Dosage: UNK, BID
     Route: 061
     Dates: start: 201701

REACTIONS (3)
  - Application site erythema [Not Recovered/Not Resolved]
  - Application site erosion [Not Recovered/Not Resolved]
  - Application site scab [Not Recovered/Not Resolved]

NARRATIVE: CASE EVENT DATE: 2017
